FAERS Safety Report 17174692 (Version 1)
Quarter: 2019Q4

REPORT INFORMATION
  Report Type: Spontaneous
  Country: US (occurrence: US)
  Receive Date: 20191219
  Receipt Date: 20191219
  Transmission Date: 20200122
  Serious: No
  Sender: FDA-Public Use
  Company Number: US-UCBSA-120889

PATIENT
  Age: 29 Year
  Sex: Female

DRUGS (2)
  1. 6-MERCAPTOPURINE [Concomitant]
     Active Substance: MERCAPTOPURINE
     Indication: CROHN^S DISEASE
     Dates: start: 201403
  2. CIMZIA [Suspect]
     Active Substance: CERTOLIZUMAB PEGOL
     Indication: CROHN^S DISEASE
     Dosage: 400 MG STOMACH X 2 THEN MAINTENANCE 400 MG Q MONTH

REACTIONS (6)
  - Pain in extremity [Unknown]
  - Injection site reaction [Unknown]
  - Back pain [Unknown]
  - Eye pain [Unknown]
  - Neck pain [Unknown]
  - Urinary tract infection [Recovered/Resolved]

NARRATIVE: CASE EVENT DATE: 20140504
